FAERS Safety Report 5229191-X (Version None)
Quarter: 2007Q1

REPORT INFORMATION
  Report Type: 
  Country: None (occurrence: None)
  Receive Date: 20061201
  Receipt Date: 20060915
  Transmission Date: 20070707
  Serious: No
  Sender: FDA-Public Use
  Company Number: US200609001142

PATIENT
  Age: 63 Year
  Sex: Female

DRUGS (5)
  1. CYMBALTA [Suspect]
     Indication: ANXIETY
     Dosage: SEE IMAGE
     Dates: start: 20060901, end: 20060906
  2. CYMBALTA [Suspect]
     Indication: ANXIETY
     Dosage: SEE IMAGE
     Dates: start: 20060910
  3. LEVOXYL [Concomitant]
  4. OTHER ANTIHYPERTENSIVES [Concomitant]
  5. ST. JOHN'S WORT (HYPERICUM PERFORATUM) [Concomitant]

REACTIONS (7)
  - CONSTIPATION [None]
  - CRYING [None]
  - DEPRESSION [None]
  - EARLY MORNING AWAKENING [None]
  - INSOMNIA [None]
  - NERVOUSNESS [None]
  - URINE OUTPUT DECREASED [None]
